FAERS Safety Report 8859457 (Version 2)
Quarter: 2015Q3

REPORT INFORMATION
  Report Type: Report from Study
  Country: US (occurrence: US)
  Receive Date: 20121024
  Receipt Date: 20150911
  Transmission Date: 20151125
  Serious: Yes (Death)
  Sender: FDA-Public Use
  Company Number: US-ROCHE-1134355

PATIENT
  Sex: Female

DRUGS (3)
  1. RAPTIVA [Suspect]
     Active Substance: EFALIZUMAB
     Indication: PUSTULAR PSORIASIS
     Route: 065
  2. RAPTIVA [Suspect]
     Active Substance: EFALIZUMAB
     Route: 065
  3. RAPTIVA [Suspect]
     Active Substance: EFALIZUMAB
     Indication: PSORIASIS
     Dosage: CONDITIONING DOSE
     Route: 065

REACTIONS (4)
  - Death [Fatal]
  - Pain [Unknown]
  - Staphylococcal infection [Unknown]
  - Skin exfoliation [Unknown]
